FAERS Safety Report 5115116-4 (Version None)
Quarter: 2006Q3

REPORT INFORMATION
  Report Type: 
  Country: None (occurrence: None)
  Receive Date: 20060922
  Receipt Date: 20060911
  Transmission Date: 20061208
  Serious: Yes (Other)
  Sender: FDA-Public Use
  Company Number: 2006110925

PATIENT
  Age: 88 Year
  Sex: Female

DRUGS (7)
  1. INSPRA [Suspect]
     Indication: BLOOD PRESSURE
     Dosage: 25 MG (25 MG, FREQUENCY: QD INTERVAL: EVERY DAY)
     Dates: start: 20060817, end: 20060911
  2. DIOVAN [Suspect]
     Dates: end: 20060902
  3. PLAVIX [Concomitant]
  4. DEMADEX [Concomitant]
  5. ACETYLSALICYCLIC AICD (ACETYLSALICYLIC ACID) [Concomitant]
  6. ALLOPURINOL [Concomitant]
  7. HYDROXYUREA [Concomitant]

REACTIONS (3)
  - DYSKINESIA [None]
  - MALAISE [None]
  - SWOLLEN TONGUE [None]
